FAERS Safety Report 7228334-6 (Version None)
Quarter: 2011Q1

REPORT INFORMATION
  Report Type: 
  Country: None (occurrence: None)
  Receive Date: 20110114
  Receipt Date: 20110104
  Transmission Date: 20110831
  Serious: Yes (Other)
  Sender: FDA-Public Use
  Company Number: DE-BAYER-201047281GPV

PATIENT
  Sex: Female

DRUGS (1)
  1. MIRENA [Suspect]
     Indication: PRODUCT USED FOR UNKNOWN INDICATION
     Dosage: 20 A?G (DAILY DOSE), CONT, INTRA-UTERINE
     Route: 015
     Dates: start: 20101019, end: 20101109

REACTIONS (3)
  - APPENDICITIS [None]
  - PERITONITIS [None]
  - SALPINGO-OOPHORITIS [None]
